FAERS Safety Report 8211620-0 (Version None)
Quarter: 2012Q1

REPORT INFORMATION
  Report Type: 
  Country: None (occurrence: None)
  Receive Date: 20120315
  Receipt Date: 20120307
  Transmission Date: 20120608
  Serious: Yes (Hospitalization)
  Sender: FDA-Public Use
  Company Number: CA-JNJFOC-20110811298

PATIENT
  Sex: Male

DRUGS (26)
  1. ZOLADEX [Concomitant]
     Indication: HORMONE THERAPY
     Route: 058
     Dates: start: 20100120
  2. ZOLADEX [Concomitant]
     Route: 058
     Dates: start: 20090601
  3. MULTI-VITAMINS [Concomitant]
     Indication: GENERAL PHYSICAL CONDITION
     Route: 048
     Dates: start: 20090101, end: 20110819
  4. HYDROCHLOROTHIAZIDE [Concomitant]
     Indication: HYPERTENSION
     Route: 048
     Dates: start: 20110120, end: 20110819
  5. NAPROSYN [Concomitant]
     Indication: ARTHRALGIA
     Route: 048
     Dates: start: 20110820
  6. DIDROCAL [Concomitant]
     Indication: OSTEOPOROSIS
     Route: 058
     Dates: start: 20091211, end: 20110819
  7. EFFEXOR XR [Concomitant]
     Indication: HOT FLUSH
     Route: 048
     Dates: start: 20101229
  8. NICORETTE [Concomitant]
     Indication: SMOKING CESSATION THERAPY
     Route: 048
     Dates: start: 20110307
  9. OSTEO BI-FLEX [Concomitant]
     Indication: ARTHRALGIA
     Route: 048
     Dates: start: 20110503, end: 20110819
  10. ABIRATERONE ACETATE [Suspect]
     Indication: PROSTATE CANCER METASTATIC
     Route: 048
     Dates: start: 20100120, end: 20110824
  11. CALCIUM [Concomitant]
     Indication: GENERAL PHYSICAL CONDITION
     Route: 048
     Dates: start: 20090201, end: 20110819
  12. SLOW-K [Concomitant]
     Route: 048
     Dates: start: 20110819, end: 20110820
  13. ABIRATERONE ACETATE [Suspect]
     Route: 048
  14. ZOLADEX [Concomitant]
     Route: 058
     Dates: start: 20090601
  15. VITAMIN D [Concomitant]
     Indication: GENERAL PHYSICAL CONDITION
     Route: 048
     Dates: start: 20100206, end: 20110819
  16. ADALAT CC [Concomitant]
     Indication: HYPERTENSION
     Route: 048
     Dates: start: 20110822
  17. PREDNISONE TAB [Suspect]
     Indication: PROSTATE CANCER METASTATIC
     Route: 048
     Dates: start: 20100120, end: 20110830
  18. ZOLADEX [Concomitant]
     Indication: PROSTATE CANCER
     Route: 058
     Dates: start: 20100120
  19. LOVAZA [Concomitant]
     Indication: GENERAL PHYSICAL CONDITION
     Route: 048
     Dates: start: 20091001, end: 20110819
  20. NAPROXEN (ALEVE) [Concomitant]
     Indication: ARTHRALGIA
     Route: 048
     Dates: start: 20110120
  21. SLOW-K [Concomitant]
     Indication: HYPOKALAEMIA
     Route: 048
     Dates: start: 20110821, end: 20110829
  22. SLOW-K [Concomitant]
     Route: 048
     Dates: start: 20110809, end: 20110816
  23. NICOTINE [Concomitant]
     Indication: SMOKING CESSATION THERAPY
     Route: 062
     Dates: start: 20110307
  24. ASPIRIN [Concomitant]
     Indication: CEREBRAL ISCHAEMIA
     Route: 048
     Dates: start: 20110825, end: 20110828
  25. QUINAPRIL [Concomitant]
     Indication: HYPERTENSION
     Route: 048
     Dates: start: 20100111
  26. VITAMIN B-12 [Concomitant]
     Indication: NUTRITIONAL SUPPORT
     Route: 048
     Dates: start: 20110822, end: 20110908

REACTIONS (1)
  - CEREBRAL ISCHAEMIA [None]
